FAERS Safety Report 18763014 (Version 1)
Quarter: 2021Q1

REPORT INFORMATION
  Report Type: Report from Study
  Country: US (occurrence: US)
  Receive Date: 20210120
  Receipt Date: 20210120
  Transmission Date: 20210419
  Serious: Yes (Other)
  Sender: FDA-Public Use
  Company Number: US-MYLANLABS-2021M1003455

PATIENT
  Sex: Female

DRUGS (2)
  1. CARBOPLATIN. [Suspect]
     Active Substance: CARBOPLATIN
     Indication: BREAST CANCER METASTATIC
     Dosage: UNK, Q21D
     Route: 065
  2. VELIPARIB [Suspect]
     Active Substance: VELIPARIB
     Indication: BREAST CANCER METASTATIC
     Dosage: 50 MILLIGRAM, BID, EVERY 21 DAYS
     Route: 048

REACTIONS (1)
  - Myelodysplastic syndrome [Unknown]
